FAERS Safety Report 5567155-7 (Version None)
Quarter: 2007Q4

REPORT INFORMATION
  Report Type: 
  Country: None (occurrence: None)
  Receive Date: 20071219
  Receipt Date: 20071025
  Transmission Date: 20080405
  Serious: Yes (Other)
  Sender: FDA-Public Use
  Company Number: US-PURDUE-USA_2007_0030214

PATIENT
  Sex: Female

DRUGS (13)
  1. XANAX [Concomitant]
  2. NORCO [Concomitant]
  3. VICODIN [Concomitant]
  4. NUBAIN [Concomitant]
  5. VISTARIL [Concomitant]
  6. PHENOBARB [Concomitant]
  7. KLONOPIN [Concomitant]
  8. POTASSIUM CHLORIDE [Concomitant]
  9. SEROQUEL [Concomitant]
  10. RITALIN [Concomitant]
  11. FOLIC ACID [Concomitant]
  12. AMBIEN [Concomitant]
  13. OXYCONTIN [Suspect]
     Indication: PAIN
     Dosage: 40 MG, TID
     Route: 048
     Dates: start: 19930701, end: 20060101

REACTIONS (4)
  - DRUG ABUSE [None]
  - DRUG DEPENDENCE [None]
  - DRUG WITHDRAWAL SYNDROME [None]
  - SUICIDE ATTEMPT [None]
